FAERS Safety Report 16983394 (Version 1)
Quarter: 2019Q4

REPORT INFORMATION
  Report Type: Spontaneous
  Country: US (occurrence: US)
  Receive Date: 20191030
  Receipt Date: 20191030
  Transmission Date: 20200122
  Serious: Yes (Other)
  Sender: FDA-Public Use
  Company Number: None

PATIENT
  Age: 53 Year
  Sex: Male
  Weight: 72 kg

DRUGS (5)
  1. LACTALOSE [Concomitant]
     Active Substance: LACTULOSE
  2. RISPERDAL [Suspect]
     Active Substance: RISPERIDONE
     Indication: DEPRESSION
     Route: 048
     Dates: start: 20161110, end: 20170527
  3. TYLENOL [Concomitant]
     Active Substance: ACETAMINOPHEN
  4. ALDACTONE [Concomitant]
     Active Substance: SPIRONOLACTONE
  5. PROPANALOL [Concomitant]

REACTIONS (1)
  - Gynaecomastia [None]

NARRATIVE: CASE EVENT DATE: 20170415
